FAERS Safety Report 15691294 (Version 1)
Quarter: 2018Q4

REPORT INFORMATION
  Report Type: Spontaneous
  Country: US (occurrence: US)
  Receive Date: 20181205
  Receipt Date: 20181205
  Transmission Date: 20190205
  Serious: No
  Sender: FDA-Public Use
  Company Number: US-SA-2018SA330533

PATIENT
  Sex: Male

DRUGS (1)
  1. DUPIXENT [Suspect]
     Active Substance: DUPILUMAB
     Indication: DERMATITIS ATOPIC
     Dosage: 300 MG, QOW
     Route: 058

REACTIONS (7)
  - Nausea [Recovering/Resolving]
  - Pallor [Recovering/Resolving]
  - Fatigue [Unknown]
  - Hyperhidrosis [Recovering/Resolving]
  - Eye movement disorder [Recovering/Resolving]
  - Syncope [Recovering/Resolving]
  - Blood glucose decreased [Recovering/Resolving]
